FAERS Safety Report 8348515-8 (Version None)
Quarter: 2012Q2

REPORT INFORMATION
  Report Type: 
  Country: None (occurrence: None)
  Receive Date: 20120509
  Receipt Date: 20120423
  Transmission Date: 20120825
  Serious: Yes (Other)
  Sender: FDA-Public Use
  Company Number: PHHY2009KR29802

PATIENT
  Sex: Female
  Weight: 56 kg

DRUGS (1)
  1. EXJADE [Suspect]
     Indication: IRON OVERLOAD
     Dosage: 750 MG, UNK
     Route: 048
     Dates: start: 20081202, end: 20090716

REACTIONS (5)
  - DECREASED APPETITE [None]
  - SERUM FERRITIN ABNORMAL [None]
  - DIARRHOEA [None]
  - GRAFT VERSUS HOST DISEASE [None]
  - VOMITING [None]
